FAERS Safety Report 10792031 (Version 1)
Quarter: 2015Q1

REPORT INFORMATION
  Report Type: Spontaneous
  Country: US (occurrence: US)
  Receive Date: 20150213
  Receipt Date: 20150213
  Transmission Date: 20150721
  Serious: No
  Sender: FDA-Public Use
  Company Number: US-ASTRAZENECA-2015SE11553

PATIENT
  Age: 51 Year
  Sex: Female
  Weight: 89.8 kg

DRUGS (10)
  1. FETENAL PATCH [Concomitant]
     Indication: PAIN
  2. BIOTIN [Concomitant]
     Active Substance: BIOTIN
     Indication: HYPOVITAMINOSIS
     Route: 048
     Dates: start: 201501
  3. PHENERGAN [Concomitant]
     Active Substance: PROMETHAZINE HYDROCHLORIDE
     Indication: NAUSEA
     Route: 048
  4. AZOR [Concomitant]
     Active Substance: AMLODIPINE BESYLATE\OLMESARTAN MEDOXOMIL
     Indication: BLOOD PRESSURE
     Route: 048
     Dates: start: 2014
  5. PROBIOTIC [Concomitant]
     Active Substance: PROBIOTICS NOS
     Indication: COLON INJURY
     Dosage: EVERY DAY
     Route: 048
  6. BYSTOLIC [Concomitant]
     Active Substance: NEBIVOLOL HYDROCHLORIDE
     Indication: BLOOD PRESSURE
     Route: 048
     Dates: start: 2014
  7. SCOLOPINE [Concomitant]
     Indication: NAUSEA
     Dosage: EVERY 72 HOURS
     Dates: start: 20150126
  8. PROBIOTIC [Concomitant]
     Active Substance: PROBIOTICS NOS
     Indication: IMMUNE SYSTEM DISORDER
     Dosage: EVERY DAY
     Route: 048
  9. AZOR [Concomitant]
     Active Substance: AMLODIPINE BESYLATE\OLMESARTAN MEDOXOMIL
     Indication: CARDIAC DISORDER
     Route: 048
     Dates: start: 2014
  10. LYNPARZA [Suspect]
     Active Substance: OLAPARIB
     Indication: OVARIAN CANCER
     Route: 048
     Dates: start: 20150122

REACTIONS (4)
  - Nausea [Unknown]
  - Somnolence [Unknown]
  - Pyrexia [Unknown]
  - Vomiting [Unknown]

NARRATIVE: CASE EVENT DATE: 201501
